FAERS Safety Report 6722876-5 (Version None)
Quarter: 2010Q2

REPORT INFORMATION
  Report Type: 
  Country: None (occurrence: None)
  Receive Date: 20100512
  Receipt Date: 20100512
  Transmission Date: 20101027
  Serious: No
  Sender: FDA-Public Use
  Company Number: None

PATIENT
  Age: 55 Year
  Sex: Male

DRUGS (1)
  1. MORPHINE [Suspect]
     Dosage: 15 MG ONCE PO
     Route: 048
     Dates: start: 20100324

REACTIONS (2)
  - LETHARGY [None]
  - SEDATION [None]
